FAERS Safety Report 6004069-2 (Version None)
Quarter: 2008Q4

REPORT INFORMATION
  Report Type: 
  Country: None (occurrence: None)
  Receive Date: 20081216
  Receipt Date: 20081211
  Transmission Date: 20090506
  Serious: Yes (Hospitalization)
  Sender: FDA-Public Use
  Company Number: B0550381A

PATIENT
  Age: 40 Year
  Sex: Male

DRUGS (4)
  1. TELZIR [Suspect]
     Indication: HIV INFECTION
     Route: 048
     Dates: start: 20080701, end: 20080922
  2. NORVIR [Suspect]
     Indication: HIV INFECTION
     Route: 048
     Dates: start: 20080701, end: 20080922
  3. TRUVADA [Suspect]
     Indication: HIV INFECTION
     Route: 048
     Dates: start: 20080701, end: 20080922
  4. ZYPREXA [Suspect]
     Indication: DRUG USE FOR UNKNOWN INDICATION
     Dosage: 10MG PER DAY
     Route: 048
     Dates: start: 20080101, end: 20080922

REACTIONS (3)
  - DRUG INTERACTION [None]
  - HEPATITIS CHOLESTATIC [None]
  - TRANSAMINASES INCREASED [None]
